FAERS Safety Report 5457356-0 (Version None)
Quarter: 2007Q3

REPORT INFORMATION
  Report Type: 
  Country: None (occurrence: None)
  Receive Date: 20070918
  Receipt Date: 20070907
  Transmission Date: 20080115
  Serious: Yes (Other)
  Sender: FDA-Public Use
  Company Number: PT-PFIZER INC-2007064059

PATIENT
  Age: 34 Year
  Sex: Male
  Weight: 78 kg

DRUGS (1)
  1. CHAMPIX [Suspect]
     Indication: SMOKING CESSATION THERAPY
     Route: 048
     Dates: start: 20070601, end: 20070701

REACTIONS (4)
  - ANXIETY [None]
  - HEADACHE [None]
  - NAUSEA [None]
  - PANIC DISORDER [None]
